FAERS Safety Report 25727069 (Version 1)
Quarter: 2025Q3

REPORT INFORMATION
  Report Type: Spontaneous
  Country: US (occurrence: None)
  Receive Date: 20250825
  Receipt Date: 20250825
  Transmission Date: 20251020
  Serious: Yes (Hospitalization, Other)
  Sender: FDA-CTU
  Company Number: None

PATIENT
  Age: 75 Year
  Sex: Female

DRUGS (2)
  1. TAVNEOS [Suspect]
     Active Substance: AVACOPAN
     Route: 048
     Dates: start: 20241211
  2. TAVNEOS [Concomitant]
     Active Substance: AVACOPAN
     Dates: start: 20241211

REACTIONS (3)
  - Weight decreased [None]
  - Decreased appetite [None]
  - Therapy interrupted [None]

NARRATIVE: CASE EVENT DATE: 20250825
